FAERS Safety Report 26056569 (Version 1)
Quarter: 2025Q4

REPORT INFORMATION
  Report Type: Spontaneous
  Country: EU (occurrence: EU)
  Receive Date: 20251118
  Receipt Date: 20251118
  Transmission Date: 20260118
  Serious: Yes (Hospitalization, Other)
  Sender: AUROBINDO
  Company Number: EU-AFSSAPS-TO2025001350

PATIENT
  Age: 58 Year
  Sex: Female
  Weight: 55 kg

DRUGS (3)
  1. AZITHROMYCIN DIHYDRATE [Suspect]
     Active Substance: AZITHROMYCIN DIHYDRATE
     Indication: Paronychia
     Dosage: 500 MILLIGRAM, ONCE A DAY
     Dates: start: 20250815, end: 20250819
  2. BACTRIM [Suspect]
     Active Substance: SULFAMETHOXAZOLE\TRIMETHOPRIM
     Indication: Paronychia
     Dosage: 2 DOSAGE FORM, ONCE A DAY (1 CP DEUX FOIS PAR JOUR)
     Dates: start: 20250819, end: 20250823
  3. PRISTINAMYCIN [Suspect]
     Active Substance: PRISTINAMYCIN
     Indication: Paronychia
     Dosage: 2 GRAM, ONCE A DAY (1G X2 PAR JOUR)
     Dates: start: 20250811, end: 20250815

REACTIONS (1)
  - Immune thrombocytopenia [Recovering/Resolving]

NARRATIVE: CASE EVENT DATE: 20250823
